FAERS Safety Report 8554849 (Version 4)
Quarter: 2013Q1

REPORT INFORMATION
  Report Type: Spontaneous
  Country: US (occurrence: US)
  Receive Date: 20120510
  Receipt Date: 20130321
  Transmission Date: 20140127
  Serious: Yes (Other)
  Sender: FDA-Public Use
  Company Number: US-PFIZER INC-2012111063

PATIENT
  Age: 77 Year
  Sex: Female
  Weight: 97 kg

DRUGS (9)
  1. NEURONTIN [Suspect]
     Indication: FIBROMYALGIA
     Dosage: 400 MG, 2X/DAY
  2. NEURONTIN [Suspect]
     Dosage: UNK
     Dates: end: 201201
  3. GABAPENTIN [Suspect]
     Indication: FIBROMYALGIA
     Dosage: UNK
     Route: 048
  4. GABAPENTIN [Suspect]
     Dosage: 400 MG, 2X/DAY
     Route: 048
     Dates: start: 20120809
  5. TYLENOL [Suspect]
     Indication: PAIN IN EXTREMITY
     Dosage: UNK
     Dates: start: 201201, end: 2012
  6. TEMAZEPAM [Concomitant]
     Dosage: UNK
  7. DEXILANT [Concomitant]
     Indication: GASTROOESOPHAGEAL REFLUX DISEASE
     Dosage: UNK
  8. LIPITOR [Concomitant]
     Indication: HYPERTENSION
     Dosage: 20 MG, 1X/DAY
  9. TOPROL [Concomitant]
     Indication: BLOOD CHOLESTEROL INCREASED
     Dosage: 50 MG, DAILY

REACTIONS (10)
  - Pulmonary thrombosis [Unknown]
  - Pneumonia [Unknown]
  - Drug ineffective [Unknown]
  - Abdominal discomfort [Not Recovered/Not Resolved]
  - Headache [Recovered/Resolved]
  - Pain [Not Recovered/Not Resolved]
  - Nausea [Recovered/Resolved]
  - Tremor [Not Recovered/Not Resolved]
  - Malaise [Not Recovered/Not Resolved]
  - Influenza [Unknown]
